FAERS Safety Report 5491962-2 (Version None)
Quarter: 2007Q4

REPORT INFORMATION
  Report Type: 
  Country: None (occurrence: None)
  Receive Date: 20071018
  Receipt Date: 20071018
  Transmission Date: 20080405
  Serious: No
  Sender: FDA-Public Use
  Company Number: None

PATIENT
  Age: 75 Year
  Sex: Male

DRUGS (1)
  1. ARIPIPRAZOLE [Suspect]
     Indication: PSYCHOTIC DISORDER
     Dosage: 30MG  HS  PO
     Route: 048
     Dates: start: 20070801, end: 20070816

REACTIONS (3)
  - ASTHENIA [None]
  - CONFUSIONAL STATE [None]
  - HYPOTENSION [None]
